FAERS Safety Report 16921598 (Version 2)
Quarter: 2020Q3

REPORT INFORMATION
  Report Type: Report from Study
  Country: IN (occurrence: IN)
  Receive Date: 20191015
  Receipt Date: 20200929
  Transmission Date: 20201102
  Serious: Yes (Death, Other)
  Sender: FDA-Public Use
  Company Number: NVSC2019IN003676

PATIENT
  Age: 57 Year
  Sex: Female

DRUGS (2)
  1. GLIVEC [Suspect]
     Active Substance: IMATINIB MESYLATE
     Indication: CHRONIC MYELOID LEUKAEMIA
     Dosage: 400 MG, QD
     Route: 065
  2. GLIVEC [Suspect]
     Active Substance: IMATINIB MESYLATE
     Dosage: 200 MG, QD(2 X 100MG TABLETS)
     Route: 065

REACTIONS (3)
  - Renal impairment [Unknown]
  - Death [Fatal]
  - Drug intolerance [Unknown]

NARRATIVE: CASE EVENT DATE: 20200924
